FAERS Safety Report 8840300 (Version 1)
Quarter: 2012Q4

REPORT INFORMATION
  Report Type: 
  Country: US (occurrence: US)
  Receive Date: 20121015
  Receipt Date: 20121015
  Transmission Date: 20130627
  Serious: Yes (Other)
  Sender: FDA-Public Use
  Company Number: US-ASTRAZENECA-2012SE76889

PATIENT
  Age: 70 Year
  Sex: Female

DRUGS (2)
  1. NEXIUM [Suspect]
     Dosage: ONCE A DAY
     Route: 048
  2. NEXIUM [Suspect]
     Dosage: TWICE A DAY
     Route: 048

REACTIONS (5)
  - Hiatus hernia [Unknown]
  - Vomiting [Unknown]
  - Drug ineffective [Unknown]
  - Intentional drug misuse [Unknown]
  - Drug dose omission [Unknown]
